FAERS Safety Report 4335079-9 (Version None)
Quarter: 2004Q1

REPORT INFORMATION
  Report Type: 
  Country: None (occurrence: None)
  Receive Date: 20040329
  Receipt Date: 20040127
  Transmission Date: 20041129
  Serious: No
  Sender: FDA-Public Use
  Company Number: 04P-163-0248704-00

PATIENT
  Age: 20 Year
  Sex: Female
  Weight: 52.1637 kg

DRUGS (6)
  1. HUMIRA [Suspect]
     Indication: RHEUMATOID ARTHRITIS
     Dosage: 40 MG, 1 IN 2 WK, SUBCUTANEOUS
     Route: 058
     Dates: start: 20030801
  2. METHOTREXATE [Concomitant]
  3. FOLIC ACID [Concomitant]
  4. IBUPROFEN [Concomitant]
  5. PAROXETINE HCL [Concomitant]
  6. LAVORA [Concomitant]

REACTIONS (1)
  - INJECTION SITE HAEMORRHAGE [None]
